FAERS Safety Report 8101399-5 (Version None)
Quarter: 2012Q1

REPORT INFORMATION
  Report Type: 
  Country: None (occurrence: None)
  Receive Date: 20120129
  Receipt Date: 20110906
  Transmission Date: 20120608
  Serious: No
  Sender: FDA-Public Use
  Company Number: US-ABBOTT-11P-163-0852421-00

PATIENT
  Sex: Female

DRUGS (3)
  1. HUMIRA [Suspect]
     Dosage: 4TH INJECTION SINCE RESUMING
  2. HUMIRA [Suspect]
     Indication: RHEUMATOID ARTHRITIS
     Route: 058
     Dates: start: 20100801
  3. PREDNISONE TAB [Concomitant]
     Indication: PRODUCT USED FOR UNKNOWN INDICATION

REACTIONS (5)
  - MUSCULOSKELETAL STIFFNESS [None]
  - JOINT STIFFNESS [None]
  - PAIN [None]
  - ARTHRALGIA [None]
  - WOUND [None]
